FAERS Safety Report 8331720-4 (Version None)
Quarter: 2012Q2

REPORT INFORMATION
  Report Type: 
  Country: None (occurrence: None)
  Receive Date: 20120502
  Receipt Date: 20110323
  Transmission Date: 20120825
  Serious: No
  Sender: FDA-Public Use
  Company Number: US-ASTRAZENECA-2011SE16594

PATIENT
  Sex: Female
  Weight: 86.2 kg

DRUGS (4)
  1. POLESTID [Concomitant]
  2. PRILOSEC [Concomitant]
  3. ENTOCORT EC [Suspect]
     Route: 048
     Dates: start: 20100701
  4. ASACOL [Concomitant]

REACTIONS (5)
  - CONTUSION [None]
  - WEIGHT INCREASED [None]
  - MUSCULAR WEAKNESS [None]
  - NAUSEA [None]
  - SWELLING [None]
